FAERS Safety Report 22525149 (Version 1)
Quarter: 2023Q2

REPORT INFORMATION
  Report Type: Other
  Country: None (occurrence: A1)
  Receive Date: 20230606
  Receipt Date: 20230606
  Transmission Date: 20230722
  Serious: No
  Sender: FDA-Public Use
  Company Number: A1-Nephron Pharmaceuticals Corporation-2142361

PATIENT
  Age: 69 Year
  Sex: Male

DRUGS (3)
  1. SODIUM CHLORIDE [Suspect]
     Active Substance: SODIUM CHLORIDE
     Indication: Hyponatraemia
     Route: 042
  2. OCTREOTIDE [Concomitant]
     Active Substance: OCTREOTIDE
  3. SODIUM BICARBONATE [Concomitant]
     Active Substance: SODIUM BICARBONATE
     Route: 042

REACTIONS (1)
  - Drug ineffective [Recovering/Resolving]
